FAERS Safety Report 5892489-6 (Version None)
Quarter: 2008Q3

REPORT INFORMATION
  Report Type: 
  Country: None (occurrence: None)
  Receive Date: 20080923
  Receipt Date: 20080912
  Transmission Date: 20090109
  Serious: Yes (Other)
  Sender: FDA-Public Use
  Company Number: US-BAYER-200813753BCC

PATIENT
  Sex: Female

DRUGS (4)
  1. ALEVE [Suspect]
     Indication: BACK PAIN
     Dosage: TOTAL DAILY DOSE: 880 MG  UNIT DOSE: 220 MG
     Route: 048
     Dates: start: 20070101
  2. NAPROSYN [Suspect]
     Indication: SPONDYLITIS
     Dosage: TOTAL DAILY DOSE: 1000 MG  UNIT DOSE: 500 MG
     Route: 048
  3. CLONIDINE [Concomitant]
  4. NIFEDIPINE [Concomitant]

REACTIONS (2)
  - BLOOD PRESSURE SYSTOLIC ABNORMAL [None]
  - FAECES DISCOLOURED [None]
